FAERS Safety Report 8476407-2 (Version None)
Quarter: 2012Q2

REPORT INFORMATION
  Report Type: 
  Country: None (occurrence: None)
  Receive Date: 20120628
  Receipt Date: 20120606
  Transmission Date: 20120825
  Serious: No
  Sender: FDA-Public Use
  Company Number: US-ASTRAZENECA-2012SE38276

PATIENT
  Sex: Female
  Weight: 83.9 kg

DRUGS (4)
  1. HERCEPTIN [Concomitant]
     Indication: BREAST CANCER
  2. FASLODEX [Suspect]
     Dosage: 500 MG
     Route: 030
  3. THYROID TAB [Concomitant]
     Indication: HYPOTHYROIDISM
  4. LORAZEPAM [Concomitant]
     Indication: ANXIETY

REACTIONS (7)
  - MYALGIA [None]
  - TENDON PAIN [None]
  - MENTAL STATUS CHANGES [None]
  - THINKING ABNORMAL [None]
  - PAIN [None]
  - CONFUSIONAL STATE [None]
  - FATIGUE [None]
